FAERS Safety Report 6808119-2 (Version None)
Quarter: 2010Q2

REPORT INFORMATION
  Report Type: 
  Country: None (occurrence: None)
  Receive Date: 20100629
  Receipt Date: 20090528
  Transmission Date: 20101027
  Serious: No
  Sender: FDA-Public Use
  Company Number: US-PFIZER INC-2009188360

PATIENT
  Age: 18 Year
  Sex: Female

DRUGS (2)
  1. XANAX [Suspect]
     Dosage: UNK
  2. OXYCONTIN [Suspect]
     Dosage: UNK

REACTIONS (4)
  - DRUG ABUSE [None]
  - PERSONALITY CHANGE [None]
  - RESTLESSNESS [None]
  - SOMNOLENCE [None]
